FAERS Safety Report 10044095 (Version 2)
Quarter: 2014Q1

REPORT INFORMATION
  Report Type: Spontaneous
  Country: US (occurrence: US)
  Receive Date: 20140328
  Receipt Date: 20140328
  Transmission Date: 20141002
  Serious: No
  Sender: FDA-Public Use
  Company Number: US-MYLANLABS-2013S1029008

PATIENT
  Age: 49 Year
  Sex: Female
  Weight: 59.88 kg

DRUGS (3)
  1. EMSAM (SELEGILINE TRANSDERMAL SYSTEM) [Suspect]
     Indication: DEPRESSION
     Dosage: CHANGES QD
     Route: 062
     Dates: start: 20131223
  2. LAMICTAL [Concomitant]
     Indication: DEPRESSION
     Route: 048
  3. ABILIFY [Concomitant]
     Indication: DEPRESSION
     Route: 048

REACTIONS (5)
  - Irritability [Not Recovered/Not Resolved]
  - Feeling abnormal [Not Recovered/Not Resolved]
  - Asthenia [Not Recovered/Not Resolved]
  - Mood altered [Not Recovered/Not Resolved]
  - Anger [Not Recovered/Not Resolved]
